FAERS Safety Report 22206784 (Version 3)
Quarter: 2023Q2

REPORT INFORMATION
  Report Type: Spontaneous
  Country: US (occurrence: US)
  Receive Date: 20230413
  Receipt Date: 20230629
  Transmission Date: 20230721
  Serious: No
  Sender: FDA-Public Use
  Company Number: US-PFIZER INC-PV202300065937

PATIENT
  Age: 55 Year
  Sex: Female

DRUGS (1)
  1. XELJANZ XR [Suspect]
     Active Substance: TOFACITINIB CITRATE
     Indication: Rheumatoid arthritis
     Dosage: 11 MG, 1X/DAY
     Route: 048
     Dates: start: 20230405

REACTIONS (11)
  - Headache [Unknown]
  - Migraine [Unknown]
  - Swelling [Unknown]
  - Nerve compression [Unknown]
  - Pain [Unknown]
  - Fibromyalgia [Unknown]
  - Arthralgia [Unknown]
  - Condition aggravated [Unknown]
  - Insomnia [Unknown]
  - Product storage error [Unknown]
  - Poor quality product administered [Unknown]
